FAERS Safety Report 15336647 (Version 4)
Quarter: 2023Q1

REPORT INFORMATION
  Report Type: Spontaneous
  Country: JP (occurrence: JP)
  Receive Date: 20180830
  Receipt Date: 20230213
  Transmission Date: 20230418
  Serious: Yes (Hospitalization, Other)
  Sender: FDA-Public Use
  Company Number: JP-NOVOPROD-618351

PATIENT
  Age: 66 Year
  Sex: Female
  Weight: 50.2 kg

DRUGS (4)
  1. VICTOZA [Suspect]
     Active Substance: LIRAGLUTIDE
     Indication: Type 2 diabetes mellitus
     Dosage: UNK
     Route: 058
     Dates: start: 201802
  2. VICTOZA [Suspect]
     Active Substance: LIRAGLUTIDE
     Dosage: 36 MG
     Route: 058
     Dates: start: 20180818
  3. LANTUS [Suspect]
     Active Substance: INSULIN GLARGINE
     Indication: Product used for unknown indication
     Dosage: UNK
     Route: 058
     Dates: start: 201802
  4. LANTUS [Suspect]
     Active Substance: INSULIN GLARGINE
     Dosage: 1 FULL PEN
     Route: 058
     Dates: start: 20180818

REACTIONS (5)
  - Suicide attempt [Recovered/Resolved]
  - Hypoglycaemia [Recovered/Resolved]
  - Nausea [Recovered/Resolved]
  - Intentional overdose [Unknown]
  - Glycosylated haemoglobin increased [Unknown]

NARRATIVE: CASE EVENT DATE: 20180818
